FAERS Safety Report 5421721-8 (Version None)
Quarter: 2007Q3

REPORT INFORMATION
  Report Type: 
  Country: None (occurrence: None)
  Receive Date: 20070821
  Receipt Date: 20070809
  Transmission Date: 20080115
  Serious: Yes (Other)
  Sender: FDA-Public Use
  Company Number: AU-PFIZER INC-2007067669

PATIENT
  Sex: Female

DRUGS (2)
  1. CABERGOLINE [Suspect]
     Indication: RESTLESS LEGS SYNDROME
  2. PERMAX [Suspect]
     Indication: RESTLESS LEGS SYNDROME
     Dates: start: 20030301, end: 20051001

REACTIONS (3)
  - MITRAL VALVE DISEASE [None]
  - OBSESSIVE-COMPULSIVE DISORDER [None]
  - PATHOLOGICAL GAMBLING [None]
